FAERS Safety Report 5834076-1 (Version None)
Quarter: 2008Q3

REPORT INFORMATION
  Report Type: 
  Country: None (occurrence: None)
  Receive Date: 20080805
  Receipt Date: 20080730
  Transmission Date: 20090109
  Serious: Yes (Hospitalization)
  Sender: FDA-Public Use
  Company Number: US-BRISTOL-MYERS SQUIBB COMPANY-14282156

PATIENT
  Age: 52 Year
  Sex: Male
  Weight: 70 kg

DRUGS (3)
  1. CETUXIMAB [Suspect]
     Indication: HEAD AND NECK CANCER
     Dosage: THERAPY AND DOSES = 16JUN08-760 MG,23JUN,30JUN,07JUL,14JUL,24JUL-475 MG,TOTAL DOSE = 3135MG
     Dates: start: 20080714, end: 20080714
  2. CISPLATIN [Suspect]
     Indication: HEAD AND NECK CANCER
     Dosage: THERAPY AND DOSES= 23JUL08- 190 MG                    14JUL08- 190 MG TOTAL DOSE = 380 MG
     Dates: start: 20080714, end: 20080714
  3. RADIATION THERAPY [Suspect]
     Indication: HEAD AND NECK CANCER
     Dosage: 1 DF= 7000CGY. NO. OF FRACTIONS:35
     Dates: start: 20080728, end: 20080728

REACTIONS (7)
  - DEHYDRATION [None]
  - DIZZINESS [None]
  - DYSPHAGIA [None]
  - FATIGUE [None]
  - HYPONATRAEMIA [None]
  - HYPOTENSION [None]
  - SEPSIS [None]
